FAERS Safety Report 9105354 (Version 1)
Quarter: 2013Q1

REPORT INFORMATION
  Report Type: Spontaneous
  Country: GB (occurrence: GB)
  Receive Date: 20130220
  Receipt Date: 20130220
  Transmission Date: 20140127
  Serious: Yes (Disabling)
  Sender: FDA-Public Use
  Company Number: GB-TEVA-386699ISR

PATIENT
  Age: 80 Year
  Sex: Male

DRUGS (5)
  1. CLARITHROMYCIN [Suspect]
     Indication: PNEUMOCOCCAL INFECTION
     Dosage: 1000 MILLIGRAM DAILY;
     Route: 048
     Dates: start: 20130128, end: 20130131
  2. BENDROFLUMETHIAZIDE [Concomitant]
  3. AMOXICILLIN [Concomitant]
  4. LAXIDO [Concomitant]
  5. CO-CODAMOL [Concomitant]

REACTIONS (4)
  - Suicidal ideation [Recovered/Resolved with Sequelae]
  - Aggression [Recovered/Resolved with Sequelae]
  - Muscle spasms [Recovered/Resolved with Sequelae]
  - Nightmare [Recovered/Resolved with Sequelae]
